FAERS Safety Report 9916429 (Version 3)
Quarter: 2014Q3

REPORT INFORMATION
  Report Type: Spontaneous
  Country: US (occurrence: US)
  Receive Date: 20140221
  Receipt Date: 20140828
  Transmission Date: 20150326
  Serious: No
  Sender: FDA-Public Use
  Company Number: US-BAYER-2014-027549

PATIENT
  Age: 37 Year
  Sex: Female

DRUGS (2)
  1. MIRENA [Suspect]
     Active Substance: LEVONORGESTREL
     Indication: CONTRACEPTION
     Dosage: 20 MCG/24HR,CONT
     Route: 015
     Dates: start: 20140211, end: 20140802
  2. MIRENA [Suspect]
     Active Substance: LEVONORGESTREL
     Indication: CONTRACEPTION
     Dosage: 20 MCG/24HR, CONT
     Route: 015
     Dates: start: 20130923, end: 20131114

REACTIONS (2)
  - Device expulsion [Recovered/Resolved]
  - Device expulsion [None]

NARRATIVE: CASE EVENT DATE: 2013
